FAERS Safety Report 6401709-0 (Version None)
Quarter: 2009Q4

REPORT INFORMATION
  Report Type: 
  Country: None (occurrence: None)
  Receive Date: 20091009
  Receipt Date: 20091009
  Transmission Date: 20100525
  Serious: Yes (Other)
  Sender: FDA-Public Use
  Company Number: None

PATIENT
  Sex: Male
  Weight: 53.8 kg

DRUGS (1)
  1. DIVALPROEX SODIUM [Suspect]
     Indication: EPILEPSY
     Dosage: 500MG BID ORALLY TAKING 1 BID
     Route: 048
     Dates: start: 20090901, end: 20090929

REACTIONS (4)
  - CONDITION AGGRAVATED [None]
  - CONVULSION [None]
  - DRUG LEVEL FLUCTUATING [None]
  - GENERALISED NON-CONVULSIVE EPILEPSY [None]
